FAERS Safety Report 8154662 (Version 5)
Quarter: 2013Q3

REPORT INFORMATION
  Report Type: Spontaneous
  Country: US (occurrence: US)
  Receive Date: 20110923
  Receipt Date: 20130904
  Transmission Date: 20140515
  Serious: Yes (Hospitalization)
  Sender: FDA-Public Use
  Company Number: US-GLAXOSMITHKLINE-A0915597A

PATIENT
  Age: 55 Year
  Sex: Female
  Weight: 131.8 kg

DRUGS (10)
  1. AVANDIA [Suspect]
     Indication: DIABETES MELLITUS
     Dosage: 8MG PER DAY
     Route: 048
     Dates: start: 200312, end: 200605
  2. AVANDARYL [Suspect]
     Indication: DIABETES MELLITUS
     Route: 048
     Dates: start: 200605, end: 200710
  3. KLONOPIN [Concomitant]
  4. ZOLOFT [Concomitant]
  5. TRENTAL [Concomitant]
  6. HYZAAR [Concomitant]
  7. ALBUTEROL [Concomitant]
  8. ADVAIR [Concomitant]
  9. HUMALOG [Concomitant]
  10. GLUCOPHAGE [Concomitant]

REACTIONS (4)
  - Cerebrovascular accident [Not Recovered/Not Resolved]
  - VIIth nerve paralysis [Unknown]
  - Cardiovascular disorder [Unknown]
  - Cardiac disorder [Unknown]
